FAERS Safety Report 13151042 (Version 1)
Quarter: 2017Q1

REPORT INFORMATION
  Report Type: Spontaneous
  Country: DK (occurrence: DK)
  Receive Date: 20170125
  Receipt Date: 20170125
  Transmission Date: 20170428
  Serious: Yes (Hospitalization)
  Sender: FDA-Public Use
  Company Number: DK-TEVA-731153ACC

PATIENT
  Age: 30 Year
  Sex: Female
  Weight: 65 kg

DRUGS (2)
  1. SERTRALINE ACTAVIS [Suspect]
     Active Substance: SERTRALINE HYDROCHLORIDE
     Indication: OBSESSIVE-COMPULSIVE DISORDER
     Dosage: 225 MILLIGRAM DAILY;
     Route: 048
     Dates: start: 2008
  2. FEXOFENADINE [Suspect]
     Active Substance: FEXOFENADINE\FEXOFENADINE HYDROCHLORIDE
     Indication: COLD URTICARIA
     Dates: start: 2001

REACTIONS (3)
  - Surgery [Recovered/Resolved]
  - Exposure during pregnancy [Recovered/Resolved]
  - Placenta accreta [Recovered/Resolved]

NARRATIVE: CASE EVENT DATE: 20150606
